FAERS Safety Report 4396358-2 (Version None)
Quarter: 2004Q2

REPORT INFORMATION
  Report Type: 
  Country: None (occurrence: None)
  Receive Date: 20040621
  Receipt Date: 20031120
  Transmission Date: 20050107
  Serious: Yes (Death)
  Sender: FDA-Public Use
  Company Number: USA-2003-0011184

PATIENT
  Age: 18 Year
  Sex: Male
  Weight: 74.4 kg

DRUGS (5)
  1. OXYCONTIN [Suspect]
  2. ALPRAZOLAM [Suspect]
  3. COCAINE (COCAINE) [Concomitant]
  4. NICOTINE [Concomitant]
  5. CAFFEINE (CAFFEINE) [Suspect]

REACTIONS (2)
  - DYSPNOEA [None]
  - MULTIPLE DRUG OVERDOSE ACCIDENTAL [None]
